FAERS Safety Report 9325591 (Version 1)
Quarter: 2013Q2

REPORT INFORMATION
  Report Type: Spontaneous
  Country: NZ (occurrence: NZ)
  Receive Date: 20130604
  Receipt Date: 20130604
  Transmission Date: 20140414
  Serious: Yes (Other)
  Sender: FDA-Public Use
  Company Number: PHHY2013NZ055732

PATIENT
  Age: 71 Year
  Sex: Female

DRUGS (1)
  1. ACLASTA [Suspect]
     Dosage: UNK
     Route: 042
     Dates: start: 20130530

REACTIONS (5)
  - Suffocation feeling [Not Recovered/Not Resolved]
  - Chest pain [Not Recovered/Not Resolved]
  - Pallor [Not Recovered/Not Resolved]
  - Back pain [Not Recovered/Not Resolved]
  - Lethargy [Not Recovered/Not Resolved]
